FAERS Safety Report 9646023 (Version 1)
Quarter: 2013Q4

REPORT INFORMATION
  Report Type: Spontaneous
  Country: US (occurrence: US)
  Receive Date: 20131025
  Receipt Date: 20131025
  Transmission Date: 20140711
  Serious: Yes (Other)
  Sender: FDA-Public Use
  Company Number: US-MYLANLABS-2013S1023769

PATIENT
  Sex: Female

DRUGS (4)
  1. ALENDRONATE SODIUM [Suspect]
     Route: 048
     Dates: end: 20120301
  2. FOSAMAX [Suspect]
     Route: 048
     Dates: end: 20120301
  3. BONIVA [Suspect]
     Route: 048
     Dates: end: 20120301
  4. IBANDRONATE SODIUM [Suspect]
     Route: 048
     Dates: end: 20120301

REACTIONS (2)
  - Spinal fracture [Not Recovered/Not Resolved]
  - Bone disorder [Not Recovered/Not Resolved]
